FAERS Safety Report 5355118-6 (Version None)
Quarter: 2007Q2

REPORT INFORMATION
  Report Type: 
  Country: None (occurrence: None)
  Receive Date: 20070613
  Receipt Date: 20070604
  Transmission Date: 20071010
  Serious: Yes (Hospitalization)
  Sender: FDA-Public Use
  Company Number: PHBS2007BR08957

PATIENT
  Age: 55 Year
  Sex: Female
  Weight: 52 kg

DRUGS (4)
  1. INSULIN [Concomitant]
     Indication: DIABETES MELLITUS
  2. DIOCOMB SI [Suspect]
     Indication: HYPERTENSION
     Dosage: 80 MG/DAY
     Route: 048
  3. DIOVAN [Concomitant]
     Dosage: 80MG
  4. PURAN T4 [Concomitant]

REACTIONS (9)
  - BLOOD GLUCOSE INCREASED [None]
  - BLOOD PRESSURE INADEQUATELY CONTROLLED [None]
  - BLOOD PRESSURE INCREASED [None]
  - COLD SWEAT [None]
  - DIZZINESS [None]
  - FEELING HOT [None]
  - HYPERHIDROSIS [None]
  - MALAISE [None]
  - URINARY TRACT INFECTION [None]
